FAERS Safety Report 4990682-8 (Version None)
Quarter: 2006Q2

REPORT INFORMATION
  Report Type: 
  Country: None (occurrence: None)
  Receive Date: 20060427
  Receipt Date: 20060420
  Transmission Date: 20061013
  Serious: Yes (Death, Life-Threatening)
  Sender: FDA-Public Use
  Company Number: HQWYE919021APR06

PATIENT
  Age: 38 Year
  Sex: Male
  Weight: 83.99 kg

DRUGS (2)
  1. TYGACIL [Suspect]
     Indication: STAPHYLOCOCCAL SEPSIS
     Dosage: 50 MG 1X PER 12 HR, INTRAVENOUS
     Route: 042
     Dates: start: 20051221, end: 20060103
  2. FLUCONAZOLE [Suspect]
     Indication: FUNGAL INFECTION
     Dosage: 400 MG 1X PER 1 DAY, INTRAVENOUS
     Route: 042
     Dates: start: 20051231, end: 20060102

REACTIONS (2)
  - DISEASE PROGRESSION [None]
  - DISSEMINATED INTRAVASCULAR COAGULATION [None]
